FAERS Safety Report 9087132 (Version 1)
Quarter: 2013Q1

REPORT INFORMATION
  Report Type: Spontaneous
  Country: CO (occurrence: CO)
  Receive Date: 20130131
  Receipt Date: 20130131
  Transmission Date: 20140127
  Serious: Yes (Death)
  Sender: FDA-Public Use
  Company Number: CO-PFIZER INC-2013040764

PATIENT
  Age: 95 Year
  Sex: Male

DRUGS (2)
  1. LIPITOR [Suspect]
     Dosage: 10 MG, UNK
     Route: 065
     Dates: start: 2009, end: 20110422
  2. NORVAS [Suspect]
     Dosage: 5 MG, UNK
     Route: 065
     Dates: start: 2009, end: 20110422

REACTIONS (1)
  - Diabetes mellitus [Fatal]
